FAERS Safety Report 5749940-1 (Version None)
Quarter: 2008Q2

REPORT INFORMATION
  Report Type: 
  Country: None (occurrence: None)
  Receive Date: 20080527
  Receipt Date: 20080522
  Transmission Date: 20081010
  Serious: Yes (Hospitalization)
  Sender: FDA-Public Use
  Company Number: US-ELI_LILLY_AND_COMPANY-US200805004709

PATIENT
  Sex: Male
  Weight: 138.32 kg

DRUGS (20)
  1. BYETTA [Suspect]
     Indication: TYPE 1 DIABETES MELLITUS
     Dosage: 5 UG, 2/D
     Route: 058
     Dates: start: 20080401, end: 20080401
  2. BYETTA [Suspect]
     Dosage: 5 UG, 2/D
     Route: 058
     Dates: start: 20080101
  3. NOVOLOG [Concomitant]
     Indication: TYPE 1 DIABETES MELLITUS
     Dosage: 100 U, 3/D
     Dates: end: 20080519
  4. NOVOLOG [Concomitant]
     Dosage: 30 U, 3/D
     Dates: start: 20080520
  5. LEVEMIR [Concomitant]
     Indication: TYPE 1 DIABETES MELLITUS
     Dosage: 55 U, EACH EVENING
     Dates: end: 20080519
  6. LEVEMIR [Concomitant]
     Dosage: 60 U, EACH EVENING
     Dates: start: 20080520
  7. METFORMIN HCL [Concomitant]
     Indication: TYPE 1 DIABETES MELLITUS
     Dosage: 1000 MG, 2/D
  8. WARFARIN SODIUM [Concomitant]
     Indication: ANTICOAGULANT THERAPY
     Dosage: 5 MG, 5/W
  9. WARFARIN SODIUM [Concomitant]
     Dosage: 6 MG, 2/D
  10. ALDACTONE [Concomitant]
     Dosage: 50 MG, DAILY (1/D)
  11. LASIX [Concomitant]
     Indication: SWELLING
     Dosage: 80 MG, EACH MORNING
  12. LASIX [Concomitant]
     Dosage: 40 MG, EACH EVENING
  13. ZOCOR [Concomitant]
     Dosage: 40 MG, DAILY (1/D)
  14. FOLIC ACID [Concomitant]
     Dosage: UNK, 2/D
  15. K-DUR [Concomitant]
     Dosage: 20 MEQ, 2/D
  16. DIGOXIN [Concomitant]
     Dosage: 0.25 MG, DAILY (1/D)
  17. COREG [Concomitant]
     Indication: CARDIAC DISORDER
     Dosage: 25 MG, 2/D
  18. MULTI-VITAMIN [Concomitant]
     Dosage: UNK, DAILY (1/D)
  19. CLOTRIMAZOLE [Concomitant]
     Indication: DRY SKIN
     Dosage: UNK, UNKNOWN
  20. NEXIUM [Concomitant]
     Indication: GASTRIC DISORDER
     Dosage: 40 MG, DAILY (1/D)
     Dates: start: 20080101

REACTIONS (14)
  - BLOOD GLUCOSE INCREASED [None]
  - DECREASED APPETITE [None]
  - DEHYDRATION [None]
  - DIARRHOEA [None]
  - GASTRIC MUCOSAL LESION [None]
  - GASTRIC ULCER [None]
  - HAEMATURIA [None]
  - HYPERTENSION [None]
  - OEDEMA PERIPHERAL [None]
  - PROTEINURIA [None]
  - SWELLING [None]
  - VENOUS INJURY [None]
  - VOMITING [None]
  - WEIGHT DECREASED [None]
